FAERS Safety Report 24977084 (Version 2)
Quarter: 2025Q1

REPORT INFORMATION
  Report Type: Report from Study
  Country: US (occurrence: US)
  Receive Date: 20250217
  Receipt Date: 20250220
  Transmission Date: 20250409
  Serious: Yes (Death, Other)
  Sender: NOVARTIS
  Company Number: US-002147023-NVSC2025US026438

PATIENT
  Sex: Male

DRUGS (1)
  1. ENTRESTO [Suspect]
     Active Substance: SACUBITRIL\VALSARTAN
     Indication: Product used for unknown indication
     Dosage: UNK, BID
     Route: 048
     Dates: start: 20240126

REACTIONS (7)
  - Death [Fatal]
  - Cardiac failure chronic [Unknown]
  - Acute myocardial infarction [Unknown]
  - Coronary artery disease [Unknown]
  - Left ventricular dysfunction [Unknown]
  - Aortic aneurysm [Unknown]
  - Ejection fraction abnormal [Unknown]

NARRATIVE: CASE EVENT DATE: 20250125
